FAERS Safety Report 4924953-8 (Version None)
Quarter: 2006Q1

REPORT INFORMATION
  Report Type: 
  Country: None (occurrence: None)
  Receive Date: 20060227
  Receipt Date: 20060207
  Transmission Date: 20060701
  Serious: Yes (Hospitalization)
  Sender: FDA-Public Use
  Company Number: US-MERCK-0602USA01797

PATIENT
  Age: 68 Year
  Sex: Female
  Weight: 74 kg

DRUGS (5)
  1. VIOXX [Suspect]
     Indication: BACK PAIN
     Route: 048
     Dates: start: 20010801, end: 20041001
  2. VIOXX [Suspect]
     Indication: ARTHRITIS
     Route: 048
     Dates: start: 20010801, end: 20041001
  3. PROTONIX [Concomitant]
     Route: 048
  4. ZOCOR [Concomitant]
     Route: 048
  5. HYZAAR [Concomitant]
     Route: 048

REACTIONS (19)
  - AORTIC VALVE INCOMPETENCE [None]
  - ARTHROPATHY [None]
  - ASTHMA [None]
  - CARDIOMEGALY [None]
  - CHEST PAIN [None]
  - CORONARY ARTERY DISEASE [None]
  - DEPRESSION [None]
  - DIABETES MELLITUS NON-INSULIN-DEPENDENT [None]
  - DYSPNOEA [None]
  - EAR PAIN [None]
  - ELECTROCARDIOGRAM ST SEGMENT ELEVATION [None]
  - HYPERSENSITIVITY [None]
  - HYPERTENSION [None]
  - HYPOACUSIS [None]
  - MYOCARDIAL INFARCTION [None]
  - NODAL RHYTHM [None]
  - PRURITUS [None]
  - RECURRING SKIN BOILS [None]
  - TRICUSPID VALVE INCOMPETENCE [None]
